FAERS Safety Report 11254498 (Version 2)
Quarter: 2017Q3

REPORT INFORMATION
  Report Type: Spontaneous
  Country: US (occurrence: US)
  Receive Date: 20150709
  Receipt Date: 20170926
  Transmission Date: 20171127
  Serious: Yes (Other)
  Sender: FDA-Public Use
  Company Number: US-PFIZER INC-2015226629

PATIENT
  Age: 63 Year
  Sex: Male

DRUGS (1)
  1. LYRICA [Suspect]
     Active Substance: PREGABALIN
     Indication: DIABETIC NEUROPATHY
     Dosage: UNK

REACTIONS (6)
  - Stevens-Johnson syndrome [Unknown]
  - Swelling [Unknown]
  - Drug hypersensitivity [Unknown]
  - Rash [Unknown]
  - Skin exfoliation [Unknown]
  - Pain [Unknown]
